FAERS Safety Report 21822627 (Version 1)
Quarter: 2023Q1

REPORT INFORMATION
  Report Type: Report from Study
  Country: MX (occurrence: MX)
  Receive Date: 20230105
  Receipt Date: 20230105
  Transmission Date: 20230418
  Serious: Yes (Death)
  Sender: FDA-Public Use
  Company Number: MX-002147023-NVSC2023MX001655

PATIENT
  Age: 76 Year
  Sex: Female

DRUGS (1)
  1. KISQALI [Suspect]
     Active Substance: RIBOCICLIB
     Indication: Breast cancer
     Dosage: UNK
     Route: 048

REACTIONS (4)
  - Septic shock [Fatal]
  - Urinary tract infection [Fatal]
  - Condition aggravated [Unknown]
  - Asthenia [Unknown]

NARRATIVE: CASE EVENT DATE: 20221218
